FAERS Safety Report 6240606-0 (Version None)
Quarter: 2009Q2

REPORT INFORMATION
  Report Type: 
  Country: None (occurrence: None)
  Receive Date: 20090623
  Receipt Date: 20081030
  Transmission Date: 20091009
  Serious: No
  Sender: FDA-Public Use
  Company Number: US-ASTRAZENECA-2008UW24304

PATIENT
  Sex: Male

DRUGS (2)
  1. PULMICORT RESPULES [Suspect]
     Indication: SINUS CONGESTION
     Route: 055
     Dates: start: 20080101
  2. PULMICORT RESPULES [Suspect]
     Indication: ASTHMA
     Route: 055
     Dates: start: 20080101

REACTIONS (2)
  - DRUG INEFFECTIVE [None]
  - SLEEP DISORDER [None]
